FAERS Safety Report 13546230 (Version 1)
Quarter: 2017Q2

REPORT INFORMATION
  Report Type: Spontaneous
  Country: US (occurrence: US)
  Receive Date: 20170515
  Receipt Date: 20170515
  Transmission Date: 20170830
  Serious: No
  Sender: FDA-Public Use
  Company Number: US-SUNOVION-2017SUN001711

PATIENT

DRUGS (1)
  1. LATUDA [Suspect]
     Active Substance: LURASIDONE HYDROCHLORIDE
     Indication: BIPOLAR DISORDER
     Dosage: UNK
     Route: 048

REACTIONS (7)
  - Memory impairment [Unknown]
  - Mood swings [Unknown]
  - Heart rate decreased [Unknown]
  - Headache [Unknown]
  - Dyspnoea [Unknown]
  - Disorientation [Unknown]
  - Lethargy [Unknown]
